FAERS Safety Report 4427814-6 (Version None)
Quarter: 2004Q3

REPORT INFORMATION
  Report Type: 
  Country: None (occurrence: None)
  Receive Date: 20040816
  Receipt Date: 20040803
  Transmission Date: 20050211
  Serious: Yes (Other)
  Sender: FDA-Public Use
  Company Number: 2004052512

PATIENT
  Age: 25 Year
  Sex: Female

DRUGS (3)
  1. NIFEDIPINE [Suspect]
     Indication: TOCOLYSIS
     Dosage: UNKNOWN
     Route: 065
  2. MAGNESIUM SULFATE [Suspect]
     Indication: TOCOLYSIS
     Dosage: INTRAVENOUS
     Route: 042
  3. BETAMETHASONE [Concomitant]

REACTIONS (10)
  - BLOOD MAGNESIUM INCREASED [None]
  - BLOOD PRESSURE DECREASED [None]
  - CHEST DISCOMFORT [None]
  - DRUG EXPOSURE DURING PREGNANCY [None]
  - DRUG INTERACTION POTENTIATION [None]
  - DRUG INTOLERANCE [None]
  - DRUG TOXICITY [None]
  - HYPOCALCAEMIA [None]
  - PREMATURE LABOUR [None]
  - TETANY [None]
